FAERS Safety Report 21890010 (Version 1)
Quarter: 2023Q1

REPORT INFORMATION
  Report Type: Report from Study
  Country: CA (occurrence: CA)
  Receive Date: 20230120
  Receipt Date: 20230120
  Transmission Date: 20230418
  Serious: Yes (Hospitalization)
  Sender: FDA-Public Use
  Company Number: CA-VIIV HEALTHCARE ULC-CA2023006322

PATIENT

DRUGS (2)
  1. CABOTEGRAVIR [Suspect]
     Active Substance: CABOTEGRAVIR
     Indication: HIV infection
     Dosage: UNK, 600MG/3ML CABOTEGRAVIR
     Route: 048
     Dates: start: 20220805
  2. EDURANT [Suspect]
     Active Substance: RILPIVIRINE HYDROCHLORIDE
     Indication: HIV infection
     Dosage: UNK, 900MG/3ML RILPIVIRINE
     Route: 048
     Dates: start: 20220805

REACTIONS (1)
  - Mental disorder [Not Recovered/Not Resolved]
